FAERS Safety Report 5187071-2 (Version None)
Quarter: 2006Q4

REPORT INFORMATION
  Report Type: 
  Country: None (occurrence: None)
  Receive Date: 20061214
  Receipt Date: 20061204
  Transmission Date: 20070319
  Serious: Yes (Hospitalization, Other)
  Sender: FDA-Public Use
  Company Number: 2006132001

PATIENT
  Age: 76 Year
  Sex: Female

DRUGS (9)
  1. LYRICA [Suspect]
     Indication: PAIN
     Dosage: 150 MG (75 MG, 2 IN 1 D), ORAL
     Route: 048
  2. NEURONTIN [Suspect]
     Dosage: 200 MG (100 MG, 2 IN 1 D), ORAL
     Route: 048
  3. SINEMET [Concomitant]
  4. SINEMET MITE - SLOW RELEASE (CARBIDOPA, LEVODOPA) [Concomitant]
  5. CIPRALEX (ESCITALOPRAM) [Concomitant]
  6. IMOVANE (ZOPICLONE) [Concomitant]
  7. TRIOBE (CYANOCOBALAMIN, FOLIC ACID, PYRIDOXINE) [Concomitant]
  8. XALATAN [Concomitant]
  9. TIMOSAN (TIMOLOL MALEATE) [Concomitant]

REACTIONS (7)
  - CEREBRAL DISORDER [None]
  - CONDITION AGGRAVATED [None]
  - FALL [None]
  - PAIN IN EXTREMITY [None]
  - PARKINSON'S DISEASE [None]
  - PETIT MAL EPILEPSY [None]
  - URINARY INCONTINENCE [None]
